FAERS Safety Report 24638313 (Version 1)
Quarter: 2024Q4

REPORT INFORMATION
  Report Type: Spontaneous
  Country: US (occurrence: None)
  Receive Date: 20241119
  Receipt Date: 20241119
  Transmission Date: 20250114
  Serious: Yes (Hospitalization)
  Sender: Public
  Company Number: None

PATIENT
  Age: 60 Year
  Sex: Male
  Weight: 78 kg

DRUGS (1)
  1. EMPAGLIFLOZIN [Suspect]
     Active Substance: EMPAGLIFLOZIN
     Indication: Diabetes mellitus
     Dosage: FREQUENCY : DAILY;?
     Route: 048
     Dates: end: 20240808

REACTIONS (5)
  - Abdominal pain [None]
  - Blood pressure decreased [None]
  - Urinary tract infection [None]
  - Klebsiella test positive [None]
  - Dysuria [None]

NARRATIVE: CASE EVENT DATE: 20240614
